FAERS Safety Report 20662904 (Version 1)
Quarter: 2022Q2

REPORT INFORMATION
  Report Type: Spontaneous
  Country: US (occurrence: US)
  Receive Date: 20220401
  Receipt Date: 20220401
  Transmission Date: 20220721
  Serious: Yes (Other)
  Sender: FDA-Public Use
  Company Number: US-ELI_LILLY_AND_COMPANY-US202203009411

PATIENT
  Sex: Male

DRUGS (5)
  1. HUMALOG [Suspect]
     Active Substance: INSULIN LISPRO
     Indication: Diabetes mellitus
     Dosage: UNK UNK, UNKNOWN
     Route: 065
     Dates: start: 2000, end: 202109
  2. HUMULIN R [Suspect]
     Active Substance: INSULIN HUMAN
     Indication: Diabetes mellitus
     Dosage: UNK UNK, UNKNOWN
     Route: 065
     Dates: end: 202109
  3. LYUMJEV [Suspect]
     Active Substance: INSULIN LISPRO-AABC
     Indication: Diabetes mellitus
     Dosage: 15 U, DAILY
     Route: 065
     Dates: start: 202109
  4. FIASP [Concomitant]
     Active Substance: INSULIN ASPART
     Indication: Diabetes mellitus
  5. NOVOLOG [Concomitant]
     Active Substance: INSULIN ASPART
     Indication: Diabetes mellitus

REACTIONS (4)
  - Diabetic retinopathy [Unknown]
  - Diabetic neuropathy [Unknown]
  - Glycosylated haemoglobin increased [Unknown]
  - General physical health deterioration [Unknown]
